FAERS Safety Report 8509870 (Version 6)
Quarter: 2013Q1

REPORT INFORMATION
  Report Type: Spontaneous
  Country: IE (occurrence: IE)
  Receive Date: 20120413
  Receipt Date: 20130104
  Transmission Date: 20140127
  Serious: Yes (Death, Hospitalization, Other)
  Sender: FDA-Public Use
  Company Number: PHFR2011IE06089

PATIENT
  Age: 71 None
  Sex: Female

DRUGS (10)
  1. CLOZARIL [Suspect]
     Indication: SCHIZOPHRENIA
     Dosage: 300 MG, (200 MG IN NIGHT AND 100 IN MORNING)
     Route: 048
     Dates: start: 20040114
  2. CIPROFLOXACIN [Concomitant]
  3. TRAMADOL [Concomitant]
  4. PROCYCLIDINE [Concomitant]
  5. SERETIDE [Concomitant]
  6. ESOMEPRAZOLE [Concomitant]
  7. GALFER [Concomitant]
  8. PAROXETIN [Concomitant]
  9. NICORETTE [Concomitant]
  10. NIQUITIN [Concomitant]

REACTIONS (9)
  - Lung neoplasm malignant [Fatal]
  - Haemoptysis [Fatal]
  - Haematoma [Recovered/Resolved]
  - Haemoglobin decreased [Unknown]
  - Bladder transitional cell carcinoma [Not Recovered/Not Resolved]
  - Metamyelocyte count increased [Recovering/Resolving]
  - Neutrophil count increased [Recovered/Resolved]
  - White blood cell count increased [Recovered/Resolved]
  - Platelet count increased [Recovered/Resolved]
